FAERS Safety Report 19272501 (Version 1)
Quarter: 2021Q2

REPORT INFORMATION
  Report Type: Spontaneous
  Country: ZA (occurrence: ZA)
  Receive Date: 20210518
  Receipt Date: 20210518
  Transmission Date: 20210717
  Serious: Yes (Hospitalization)
  Sender: FDA-Public Use
  Company Number: NVSC2021ZA107804

PATIENT
  Sex: Male

DRUGS (2)
  1. SLOW?K [Suspect]
     Active Substance: POTASSIUM CHLORIDE
     Indication: BLOOD POTASSIUM DECREASED
     Dosage: 120 MG, BID
     Route: 048
  2. HEXARONE 200 [Suspect]
     Active Substance: AMIODARONE
     Indication: CARDIAC FAILURE
     Dosage: 200 MG, QD
     Route: 048

REACTIONS (6)
  - N-terminal prohormone brain natriuretic peptide increased [Unknown]
  - Dyspnoea exertional [Unknown]
  - Fatigue [Unknown]
  - Cardiac failure [Unknown]
  - Joint swelling [Unknown]
  - Product use in unapproved indication [Unknown]
